FAERS Safety Report 16907390 (Version 1)
Quarter: 2019Q4

REPORT INFORMATION
  Report Type: Spontaneous
  Country: FR (occurrence: FR)
  Receive Date: 20191011
  Receipt Date: 20191011
  Transmission Date: 20200122
  Serious: Yes (Hospitalization)
  Sender: FDA-Public Use
  Company Number: FR-TEVA-2019-FR-1120193

PATIENT
  Age: 62 Year
  Sex: Female
  Weight: 90 kg

DRUGS (7)
  1. ATROPINE. [Concomitant]
     Active Substance: ATROPINE
     Indication: PREMEDICATION
     Route: 058
     Dates: start: 20190709, end: 20190709
  2. FLUOROURACILE TEVA [Suspect]
     Active Substance: FLUOROURACIL
     Indication: RECTAL ADENOCARCINOMA
     Route: 041
     Dates: start: 20190709, end: 20190709
  3. SOLU-MEDROL [Concomitant]
     Active Substance: METHYLPREDNISOLONE SODIUM SUCCINATE
     Indication: PREMEDICATION
     Route: 041
     Dates: start: 20190709, end: 20190709
  4. FLUOROURACILE TEVA [Suspect]
     Active Substance: FLUOROURACIL
     Indication: RECTAL ADENOCARCINOMA
     Route: 041
     Dates: start: 20190709, end: 20190710
  5. CAMPTO [Concomitant]
     Active Substance: IRINOTECAN
     Indication: RECTAL ADENOCARCINOMA
     Route: 041
     Dates: start: 20190709, end: 20190709
  6. ZOPHREN [Concomitant]
     Active Substance: ONDANSETRON
     Indication: PREMEDICATION
     Route: 041
     Dates: start: 20190709, end: 20190709
  7. ELVORINE [Concomitant]
     Active Substance: LEUCOVORIN CALCIUM
     Indication: RECTAL ADENOCARCINOMA
     Route: 041
     Dates: start: 20190709, end: 20190709

REACTIONS (3)
  - Coma [Recovered/Resolved]
  - Encephalopathy [Recovered/Resolved]
  - Seizure [Recovered/Resolved]

NARRATIVE: CASE EVENT DATE: 20190710
